FAERS Safety Report 23141703 (Version 4)
Quarter: 2023Q4

REPORT INFORMATION
  Report Type: Report from Study
  Country: US (occurrence: US)
  Receive Date: 20231103
  Receipt Date: 20231225
  Transmission Date: 20240110
  Serious: No
  Sender: FDA-Public Use
  Company Number: US-002147023-NVSC2023US235228

PATIENT
  Age: 54 Year
  Sex: Male

DRUGS (1)
  1. ENTRESTO [Suspect]
     Active Substance: SACUBITRIL\VALSARTAN
     Indication: Cardiac failure
     Dosage: 0.5 DOSAGE FORM, BID
     Route: 048
     Dates: start: 20230928

REACTIONS (6)
  - Hypotension [Not Recovered/Not Resolved]
  - Heart rate decreased [Unknown]
  - Prescribed underdose [Unknown]
  - Bundle branch block left [Unknown]
  - Arteriosclerosis [Unknown]
  - Wrong technique in product usage process [Not Recovered/Not Resolved]

NARRATIVE: CASE EVENT DATE: 20231001
